FAERS Safety Report 21629523 (Version 2)
Quarter: 2023Q1

REPORT INFORMATION
  Report Type: Report from Study
  Country: US (occurrence: US)
  Receive Date: 20221122
  Receipt Date: 20230125
  Transmission Date: 20230417
  Serious: Yes (Hospitalization, Other)
  Sender: FDA-Public Use
  Company Number: US-ABBVIE-4209670

PATIENT
  Sex: Male

DRUGS (1)
  1. IMBRUVICA [Suspect]
     Active Substance: IBRUTINIB
     Indication: Mantle cell lymphoma
     Dosage: DRUG END DATE 2022
     Route: 048
     Dates: start: 202207

REACTIONS (4)
  - Stem cell transplant [Unknown]
  - Neoplasm malignant [Unknown]
  - Unevaluable event [Unknown]
  - Malaise [Unknown]
